FAERS Safety Report 10560484 (Version 2)
Quarter: 2019Q3

REPORT INFORMATION
  Report Type: Report from Study
  Country: US (occurrence: US)
  Receive Date: 20141103
  Receipt Date: 20190702
  Transmission Date: 20191004
  Serious: No
  Sender: FDA-Public Use
  Company Number: US-SA-2013SA128838

PATIENT
  Age: 28 Year
  Sex: Female
  Weight: 90 kg

DRUGS (3)
  1. ALGLUCOSIDASE ALFA [Suspect]
     Active Substance: ALGLUCOSIDASE ALFA
     Dosage: 2100 Q2
     Route: 042
  2. ALGLUCOSIDASE ALFA [Suspect]
     Active Substance: ALGLUCOSIDASE ALFA
     Indication: GLYCOGEN STORAGE DISEASE TYPE II
     Dosage: 2100 Q2
     Route: 042
     Dates: start: 20131105
  3. ALGLUCOSIDASE ALFA [Suspect]
     Active Substance: ALGLUCOSIDASE ALFA
     Dosage: 20 MG/KG, QOW
     Route: 042
     Dates: start: 20131112

REACTIONS (4)
  - Chills [Recovered/Resolved]
  - Weight increased [Unknown]
  - Hypersensitivity [Recovered/Resolved]
  - Cardiomegaly [Unknown]

NARRATIVE: CASE EVENT DATE: 20131209
